FAERS Safety Report 4439548-2 (Version None)
Quarter: 2004Q3

REPORT INFORMATION
  Report Type: 
  Country: None (occurrence: None)
  Receive Date: 20040901
  Receipt Date: 20040901
  Transmission Date: 20050211
  Serious: Yes (Hospitalization)
  Sender: FDA-Public Use
  Company Number: None

PATIENT
  Sex: Male
  Weight: 90.7194 kg

DRUGS (3)
  1. THORAZINE [Suspect]
     Indication: SOMNOLENCE
     Dosage: PO [LAST DOSE WAS 3 HOURS BEFORE ER VISIT]
     Route: 048
  2. ANTIBIOTIC FOR TOOTH [Concomitant]
  3. MOTRIN [Concomitant]

REACTIONS (3)
  - DIZZINESS [None]
  - DYSPHAGIA [None]
  - DYSPNOEA [None]
